FAERS Safety Report 24873995 (Version 1)
Quarter: 2025Q1

REPORT INFORMATION
  Report Type: Spontaneous
  Country: LB (occurrence: LB)
  Receive Date: 20250122
  Receipt Date: 20250122
  Transmission Date: 20250409
  Serious: Yes (Other)
  Sender: MYLAN
  Company Number: LB-MYLANLABS-2025M1005195

PATIENT
  Age: 67 Year
  Sex: Female

DRUGS (10)
  1. VENLAFAXINE [Suspect]
     Active Substance: VENLAFAXINE HYDROCHLORIDE
     Indication: Catatonia
     Route: 065
  2. LAMOTRIGINE [Suspect]
     Active Substance: LAMOTRIGINE
     Indication: Catatonia
     Route: 065
  3. LAMOTRIGINE [Suspect]
     Active Substance: LAMOTRIGINE
     Route: 065
  4. LORAZEPAM [Suspect]
     Active Substance: LORAZEPAM
     Indication: Catatonia
     Route: 065
  5. LORAZEPAM [Suspect]
     Active Substance: LORAZEPAM
     Route: 065
  6. LITHIUM [Suspect]
     Active Substance: LITHIUM
     Indication: Catatonia
     Route: 065
  7. KETAMINE [Concomitant]
     Active Substance: KETAMINE
     Indication: Catatonia
     Route: 042
  8. KETAMINE [Concomitant]
     Active Substance: KETAMINE
     Route: 042
  9. KETAMINE [Concomitant]
     Active Substance: KETAMINE
     Route: 042
  10. KETAMINE [Concomitant]
     Active Substance: KETAMINE
     Route: 042

REACTIONS (2)
  - Drug ineffective for unapproved indication [Unknown]
  - Off label use [Unknown]
